FAERS Safety Report 6344826-6 (Version None)
Quarter: 2009Q3

REPORT INFORMATION
  Report Type: 
  Country: None (occurrence: None)
  Receive Date: 20090904
  Receipt Date: 20090831
  Transmission Date: 20100115
  Serious: Yes (Death)
  Sender: FDA-Public Use
  Company Number: TPA2009A02459

PATIENT
  Age: 66 Year
  Sex: Male

DRUGS (14)
  1. ULORIC [Suspect]
     Indication: GOUT
     Dosage: 40 MG, 1 IN 1 D, PER ORAL, 80 MG, 1 IN 1 D, PER ORAL
     Route: 048
     Dates: start: 20090507, end: 20090527
  2. ULORIC [Suspect]
     Indication: GOUT
     Dosage: 40 MG, 1 IN 1 D, PER ORAL, 80 MG, 1 IN 1 D, PER ORAL
     Route: 048
     Dates: start: 20090508, end: 20090727
  3. PANTOPRAZOLE SODIUM [Concomitant]
  4. METOPROLOL TARTRATE [Concomitant]
  5. CRESTOR [Concomitant]
  6. POTASSIUM CHLORIDE [Concomitant]
  7. ADALAT [Concomitant]
  8. PLAVIX [Concomitant]
  9. NTG (GLYCERYL TRINITRATE) [Concomitant]
  10. ISOSORBIDE (ISOSORBIDE) [Concomitant]
  11. PREDNISONE TAB [Concomitant]
  12. LYRICA [Concomitant]
  13. NIFEDIPINE [Concomitant]
  14. COLACE (DOCUSATE SODIUM) [Concomitant]

REACTIONS (2)
  - MYOCARDIAL INFARCTION [None]
  - SUDDEN DEATH [None]
